FAERS Safety Report 14530092 (Version 3)
Quarter: 2018Q1

REPORT INFORMATION
  Report Type: Spontaneous
  Country: US (occurrence: US)
  Receive Date: 20180214
  Receipt Date: 20180331
  Transmission Date: 20180509
  Serious: Yes (Other)
  Sender: FDA-Public Use
  Company Number: US-AUROBINDO-AUR-APU-2018-004498

PATIENT

DRUGS (1)
  1. VALSARTAN TABLETS USP 160MG [Suspect]
     Active Substance: VALSARTAN
     Indication: HYPERTENSION
     Dosage: 160 MG, UNK
     Dates: start: 201710

REACTIONS (5)
  - Swelling [Recovered/Resolved]
  - Pain [Recovered/Resolved]
  - Gait inability [Recovered/Resolved]
  - Inflammation [Recovered/Resolved]
  - Rheumatoid arthritis [Recovered/Resolved]

NARRATIVE: CASE EVENT DATE: 201711
